FAERS Safety Report 9321766 (Version 1)
Quarter: 2013Q2

REPORT INFORMATION
  Report Type: Spontaneous
  Country: US (occurrence: US)
  Receive Date: 20130531
  Receipt Date: 20130531
  Transmission Date: 20140414
  Serious: Yes (Other)
  Sender: FDA-Public Use
  Company Number: US-ABBOTT-13P-163-1093448-00

PATIENT
  Sex: Male
  Weight: 72.64 kg

DRUGS (2)
  1. SYNTHROID [Suspect]
     Indication: HYPOTHYROIDISM
  2. LEVOXYL [Suspect]
     Indication: HYPOTHYROIDISM
     Route: 048

REACTIONS (2)
  - Drug level decreased [Unknown]
  - Drug level fluctuating [Unknown]
